FAERS Safety Report 11933571 (Version 1)
Quarter: 2016Q1

REPORT INFORMATION
  Report Type: Spontaneous
  Country: ES (occurrence: ES)
  Receive Date: 20160121
  Receipt Date: 20160121
  Transmission Date: 20160526
  Serious: Yes (Other)
  Sender: FDA-Public Use
  Company Number: ES-ROCHE-GNE232112

PATIENT
  Age: 31 Year
  Sex: Female

DRUGS (3)
  1. AZITHROMYCIN ANHYDROUS. [Concomitant]
     Active Substance: AZITHROMYCIN ANHYDROUS
     Indication: PNEUMONIA
  2. ACTILYSE [Suspect]
     Active Substance: ALTEPLASE
     Indication: PLEURAL EFFUSION
     Route: 034
  3. CEFTRIAXONE. [Concomitant]
     Active Substance: CEFTRIAXONE
     Indication: PNEUMONIA
     Route: 065

REACTIONS (3)
  - Haemodynamic instability [Unknown]
  - Haemothorax [Unknown]
  - Haematocrit decreased [Unknown]
